FAERS Safety Report 6921485-2 (Version None)
Quarter: 2010Q3

REPORT INFORMATION
  Report Type: 
  Country: None (occurrence: None)
  Receive Date: 20100812
  Receipt Date: 20100804
  Transmission Date: 20110219
  Serious: Yes (Other)
  Sender: FDA-Public Use
  Company Number: IT-JNJCH-2010018337

PATIENT
  Age: 28 Year
  Sex: Female

DRUGS (3)
  1. MINOXIDIL [Suspect]
     Indication: ALOPECIA AREATA
     Dosage: TEXT:2% UNSPECIFIED
     Route: 061
  2. TRETINOIN [Suspect]
     Indication: ALOPECIA AREATA
     Dosage: TEXT:0.05% UNSPECIFIED
     Route: 061
  3. BETAMETHASONE VALERATE [Suspect]
     Indication: ALOPECIA AREATA
     Dosage: TEXT:0.1% UNSPECIFIED
     Route: 061

REACTIONS (3)
  - DRUG INEFFECTIVE FOR UNAPPROVED INDICATION [None]
  - KERION [None]
  - OFF LABEL USE [None]
